FAERS Safety Report 7994354-7 (Version None)
Quarter: 2011Q4

REPORT INFORMATION
  Report Type: 
  Country: None (occurrence: None)
  Receive Date: 20111220
  Receipt Date: 20110728
  Transmission Date: 20120403
  Serious: No
  Sender: FDA-Public Use
  Company Number: US-GLAXOSMITHKLINE-A0939312A

PATIENT

DRUGS (1)
  1. SORIATANE [Suspect]

REACTIONS (1)
  - ERYTHEMA [None]
